FAERS Safety Report 7397398 (Version 2)
Quarter: 2020Q2

REPORT INFORMATION
  Report Type: Spontaneous
  Country: IT (occurrence: IT)
  Receive Date: 20100524
  Receipt Date: 20200410
  Transmission Date: 20200714
  Serious: Yes (Other)
  Sender: FDA-Public Use
  Company Number: PHHY2010IT29922

PATIENT
  Age: 66 Year
  Sex: Female

DRUGS (1)
  1. DICLOFENAC SODIUM. [Suspect]
     Active Substance: DICLOFENAC SODIUM
     Indication: PRODUCT USED FOR UNKNOWN INDICATION
     Dosage: UNK
     Route: 030

REACTIONS (5)
  - Injection site necrosis [Recovered/Resolved]
  - Embolia cutis medicamentosa [Recovered/Resolved]
  - Injection site pain [Recovered/Resolved]
  - Inflammation [Recovered/Resolved]
  - Injection site ulcer [Recovered/Resolved]
